FAERS Safety Report 7516385-3 (Version None)
Quarter: 2011Q2

REPORT INFORMATION
  Report Type: 
  Country: None (occurrence: None)
  Receive Date: 20110428
  Receipt Date: 20110107
  Transmission Date: 20111010
  Serious: Yes (Other)
  Sender: FDA-Public Use
  Company Number: 2011PROUSA00166

PATIENT
  Age: 69 Year
  Sex: Male

DRUGS (3)
  1. PROVENGE [Suspect]
     Indication: PROSTATE CANCER METASTATIC
     Dosage: 250 ML, SINGLE, INTRAVENOUS; 250 ML, SINGLE, INTRAVENOUS
     Route: 042
     Dates: start: 20101220, end: 20101220
  2. PROVENGE [Suspect]
     Indication: PROSTATE CANCER METASTATIC
     Dosage: 250 ML, SINGLE, INTRAVENOUS; 250 ML, SINGLE, INTRAVENOUS
     Route: 042
     Dates: start: 20101206, end: 20101206
  3. PROVENGE [Suspect]

REACTIONS (1)
  - HOSPICE CARE [None]
